FAERS Safety Report 25425910 (Version 1)
Quarter: 2025Q2

REPORT INFORMATION
  Report Type: Report from Study
  Country: US (occurrence: US)
  Receive Date: 20250612
  Receipt Date: 20250612
  Transmission Date: 20250716
  Serious: No
  Sender: MALLINCKRODT
  Company Number: US-MALLINCKRODT-MNK202501928

PATIENT
  Sex: Female
  Weight: 273 kg

DRUGS (3)
  1. CORTICOTROPIN [Suspect]
     Active Substance: CORTICOTROPIN
     Indication: Nephrotic syndrome
     Dates: start: 20241114
  2. CORTICOTROPIN [Suspect]
     Active Substance: CORTICOTROPIN
     Indication: Nephritic syndrome
     Dosage: 40 UNITS
     Dates: start: 20250324, end: 2025
  3. CORTICOTROPIN [Suspect]
     Active Substance: CORTICOTROPIN
     Dosage: 40 UNITS
     Dates: start: 2025

REACTIONS (7)
  - Nervousness [Unknown]
  - Contusion [Unknown]
  - Seasonal allergy [Unknown]
  - Protein total increased [Unknown]
  - Swelling [Unknown]
  - Oedema [Unknown]
  - Overdose [Unknown]
